FAERS Safety Report 12536983 (Version 1)
Quarter: 2016Q3

REPORT INFORMATION
  Report Type: Spontaneous
  Country: JP (occurrence: JP)
  Receive Date: 20160707
  Receipt Date: 20160707
  Transmission Date: 20161109
  Serious: Yes (Hospitalization)
  Sender: FDA-Public Use
  Company Number: GXJP2016JP001117

PATIENT
  Age: 92 Year
  Sex: Female

DRUGS (6)
  1. RIFAMPICIN CAPSULES [Suspect]
     Active Substance: RIFAMPIN
     Indication: TUBERCULOUS PLEURISY
     Route: 048
  2. ISONIAZID. [Interacting]
     Active Substance: ISONIAZID
     Indication: TUBERCULOUS PLEURISY
     Route: 065
  3. ETHAMBUTOL [Interacting]
     Active Substance: ETHAMBUTOL HYDROCHLORIDE
     Indication: TUBERCULOUS PLEURISY
     Route: 065
  4. PARAMIDIN [Concomitant]
     Active Substance: BUCOLOME
     Indication: THROMBOSIS PROPHYLAXIS
     Route: 065
  5. WARFARIN [Interacting]
     Active Substance: WARFARIN
     Indication: THROMBOSIS PROPHYLAXIS
     Route: 065
  6. HEPARIN [Concomitant]
     Active Substance: HEPARIN SODIUM
     Indication: THROMBOSIS PROPHYLAXIS
     Route: 065

REACTIONS (4)
  - Drug interaction [Recovering/Resolving]
  - Decreased appetite [Recovering/Resolving]
  - Superior mesenteric artery syndrome [Recovering/Resolving]
  - Weight decreased [Recovering/Resolving]
